FAERS Safety Report 7582251-0 (Version None)
Quarter: 2011Q2

REPORT INFORMATION
  Report Type: 
  Country: None (occurrence: None)
  Receive Date: 20110622
  Receipt Date: 20110602
  Transmission Date: 20111010
  Serious: No
  Sender: FDA-Public Use
  Company Number: 2011SP024161

PATIENT

DRUGS (12)
  1. AMITRIPTYLINE HCL [Concomitant]
  2. ALMOTRIPTAN [Concomitant]
  3. MIRTAZAPINE [Suspect]
     Indication: MIGRAINE PROPHYLAXIS
     Dosage: 30 MG;QD
     Dates: start: 20011025, end: 20011101
  4. TOPIRAMATE [Suspect]
     Indication: MIGRAINE PROPHYLAXIS
     Dosage: QD
     Dates: start: 20050401, end: 20051001
  5. ESCITALOPRAM [Concomitant]
  6. DICLOFENAC [Concomitant]
  7. DIHYDROERGOTAMINE [Concomitant]
  8. MAXALT [Concomitant]
  9. ESCITALOPRAM [Concomitant]
  10. DICLOFENAC SODIUM [Concomitant]
  11. ZOLMITRIPTAN [Concomitant]
  12. PREGABALINE [Concomitant]

REACTIONS (10)
  - MEDICATION ERROR [None]
  - MIGRAINE [None]
  - DEPRESSION [None]
  - SOMNOLENCE [None]
  - CONDITION AGGRAVATED [None]
  - WEIGHT INCREASED [None]
  - DRUG ABUSE [None]
  - OFF LABEL USE [None]
  - PSYCHOTIC DISORDER [None]
  - DRUG INEFFECTIVE FOR UNAPPROVED INDICATION [None]
